FAERS Safety Report 5272409-8 (Version None)
Quarter: 2007Q1

REPORT INFORMATION
  Report Type: 
  Country: None (occurrence: None)
  Receive Date: 20070319
  Receipt Date: 20070302
  Transmission Date: 20070707
  Serious: Yes (Life-Threatening, Hospitalization)
  Sender: FDA-Public Use
  Company Number: ABX02-07-0141

PATIENT
  Age: 53 Year
  Sex: Female
  Weight: 62.1428 kg

DRUGS (10)
  1. ABRAXANE [Suspect]
     Indication: BREAST CANCER
     Dosage: 292MG TOTAL DOSE / LAST DOSE PRIOR TO SAE 01-FEB-2007 (175 MG/M2), INTRAVENOUS
     Route: 042
     Dates: start: 20070103
  2. GEMCITABINE [Suspect]
     Indication: BREAST CANCER
     Dosage: 3340MG TOTAL DOSE / LAST DOSE PRIOR TO SAE 01-FEB-2007 (2000 MG/M2), INTRAVENOUS
     Route: 042
     Dates: start: 20070103
  3. EPIRUBICIN [Suspect]
     Indication: BREAST CANCER
     Dosage: 84MG TOTAL DOSE / LAST DOSE PRIOR TO SAE 01-FEB-2007 (50 MG/M2)
     Dates: start: 20070103
  4. NEULASTA [Suspect]
     Indication: COLONY STIMULATING FACTOR PROPHYLAXIS
     Dosage: 6MG TOTAL DOSE / LAST DOSE PRIOR TO SAE 02-FEB-2007 (6 MG), SUBCUTANEOUS
     Route: 058
     Dates: start: 20070104, end: 20070202
  5. EMEND (ANTIEMETICS AND ANTINAUSEANTS) [Concomitant]
  6. COMPAZINE [Concomitant]
  7. DARVOCET [Concomitant]
  8. MIRALAX POWDER (MACROGOL) [Concomitant]
  9. DICYCLOMINE [Concomitant]
  10. FIBER [Concomitant]

REACTIONS (11)
  - ABSCESS BACTERIAL [None]
  - ABSCESS INTESTINAL [None]
  - BACTERIA STOOL IDENTIFIED [None]
  - CLOSTRIDIAL INFECTION [None]
  - ENTEROCOLITIS INFECTIOUS [None]
  - ESCHERICHIA INFECTION [None]
  - HAEMOGLOBIN DECREASED [None]
  - LUNG CONSOLIDATION [None]
  - PELVIC ABSCESS [None]
  - PLATELET COUNT DECREASED [None]
  - PLEURAL EFFUSION [None]
